FAERS Safety Report 18816674 (Version 1)
Quarter: 2021Q1

REPORT INFORMATION
  Report Type: Spontaneous
  Country: US (occurrence: US)
  Receive Date: 20210201
  Receipt Date: 20210201
  Transmission Date: 20210419
  Serious: No
  Sender: FDA-Public Use
  Company Number: US-ASTRAZENECA-2021A003259

PATIENT
  Sex: Female

DRUGS (9)
  1. CARVEDILOL. [Concomitant]
     Active Substance: CARVEDILOL
  2. FARXIGA [Suspect]
     Active Substance: DAPAGLIFLOZIN PROPANEDIOL
     Dosage: 5.0MG UNKNOWN
     Route: 048
  3. ADVAIR HFA [Concomitant]
     Active Substance: FLUTICASONE PROPIONATE\SALMETEROL XINAFOATE
  4. LIPITOR [Concomitant]
     Active Substance: ATORVASTATIN CALCIUM
     Dosage: 40.0MG UNKNOWN
  5. BUMEX [Concomitant]
     Active Substance: BUMETANIDE
     Dosage: 2.0MG UNKNOWN
  6. SPIRONOLACTONE. [Concomitant]
     Active Substance: SPIRONOLACTONE
     Dosage: 25.0MG UNKNOWN
  7. ASPIRIN. [Concomitant]
     Active Substance: ASPIRIN
     Dosage: 81.0MG UNKNOWN
  8. VALSARTAN. [Concomitant]
     Active Substance: VALSARTAN
  9. NICODERM CQ [Concomitant]
     Active Substance: NICOTINE

REACTIONS (3)
  - Nausea [Recovered/Resolved]
  - Vomiting [Recovered/Resolved]
  - Dyspnoea [Recovered/Resolved]
